FAERS Safety Report 20933606 (Version 1)
Quarter: 2022Q2

REPORT INFORMATION
  Report Type: Spontaneous
  Country: US (occurrence: None)
  Receive Date: 20220607
  Receipt Date: 20220607
  Transmission Date: 20220721
  Serious: Yes (Death, Hospitalization)
  Sender: FDA-Public Use
  Company Number: None

PATIENT
  Age: 63 Year
  Sex: Female

DRUGS (1)
  1. POMALYST [Suspect]
     Active Substance: POMALIDOMIDE
     Indication: Plasma cell myeloma
     Dosage: 4 MG QD ORAL
     Route: 048
     Dates: start: 20220119, end: 20220521

REACTIONS (4)
  - Cardiac arrest [None]
  - Seizure [None]
  - Pain [None]
  - Unresponsive to stimuli [None]

NARRATIVE: CASE EVENT DATE: 20220521
